FAERS Safety Report 10744715 (Version 2)
Quarter: 2015Q1

REPORT INFORMATION
  Report Type: Spontaneous
  Country: US (occurrence: US)
  Receive Date: 20150128
  Receipt Date: 20150211
  Transmission Date: 20150721
  Serious: Yes (Other)
  Sender: FDA-Public Use
  Company Number: US-AMGEN-USASP2015005996

PATIENT
  Age: 73 Year
  Sex: Male
  Weight: 64.85 kg

DRUGS (1)
  1. XGEVA [Suspect]
     Active Substance: DENOSUMAB
     Indication: METASTASES TO BONE
     Dosage: UNK
     Route: 065

REACTIONS (7)
  - Tooth abscess [Recovered/Resolved]
  - Tongue ulceration [Unknown]
  - Toothache [Unknown]
  - Osteonecrosis of jaw [Recovering/Resolving]
  - Tooth infection [Recovered/Resolved]
  - Gingival ulceration [Unknown]
  - Impaired healing [Unknown]

NARRATIVE: CASE EVENT DATE: 201411
